FAERS Safety Report 23424763 (Version 1)
Quarter: 2024Q1

REPORT INFORMATION
  Report Type: Spontaneous
  Country: None (occurrence: US)
  Receive Date: 20240120
  Receipt Date: 20240120
  Transmission Date: 20240409
  Serious: Yes (Life-Threatening, Hospitalization)
  Sender: FDA-Public Use
  Company Number: US-i-Health, Inc.-2151638

PATIENT
  Sex: Female

DRUGS (1)
  1. AZO URINARY PAIN RELIEF MAXIMUM STRENGTH [Suspect]
     Active Substance: PHENAZOPYRIDINE HYDROCHLORIDE

REACTIONS (1)
  - Methaemoglobinaemia [None]
